FAERS Safety Report 14610266 (Version 1)
Quarter: 2018Q1

REPORT INFORMATION
  Report Type: Spontaneous
  Country: US (occurrence: US)
  Receive Date: 20180307
  Receipt Date: 20180307
  Transmission Date: 20180509
  Serious: Yes (Other)
  Sender: FDA-Public Use
  Company Number: US-BAYER-2018-039717

PATIENT
  Age: 57 Year
  Sex: Female

DRUGS (1)
  1. CLIMARA [Suspect]
     Active Substance: ESTRADIOL
     Indication: MENOPAUSE
     Dosage: 0.05MG
     Route: 062

REACTIONS (11)
  - Skin discolouration [None]
  - Restless legs syndrome [None]
  - Cardiovascular disorder [None]
  - Autoimmune disorder [None]
  - Intentional product misuse [None]
  - Hot flush [None]
  - Intentional underdose [None]
  - Feeling hot [None]
  - Wrong technique in product usage process [None]
  - Headache [None]
  - Migraine [None]
